FAERS Safety Report 5445469-9 (Version None)
Quarter: 2007Q3

REPORT INFORMATION
  Report Type: 
  Country: None (occurrence: None)
  Receive Date: 20070906
  Receipt Date: 20070822
  Transmission Date: 20080115
  Serious: No
  Sender: FDA-Public Use
  Company Number: US-BOEHRINGER INGELHEIM PHARMACEUTICALS, INC.-2007-BP-19735BP

PATIENT
  Sex: Female

DRUGS (4)
  1. ZANTAC 150 [Suspect]
     Indication: DYSPEPSIA
     Route: 048
     Dates: start: 20070501
  2. ZANTAC 150 [Suspect]
  3. ANDROXY [Concomitant]
     Indication: NEOPLASM MALIGNANT
  4. FE [Concomitant]

REACTIONS (1)
  - BLOOD POTASSIUM INCREASED [None]
